FAERS Safety Report 5699588-2 (Version None)
Quarter: 2008Q2

REPORT INFORMATION
  Report Type: 
  Country: None (occurrence: None)
  Receive Date: 20080410
  Receipt Date: 20080406
  Transmission Date: 20081010
  Serious: Yes (Disabling)
  Sender: FDA-Public Use
  Company Number: JP-TEVA-168493ISR

PATIENT
  Sex: Female
  Weight: 46 kg

DRUGS (12)
  1. CISPLATIN [Suspect]
     Indication: NON-SMALL CELL LUNG CANCER
     Dates: start: 20071010, end: 20071010
  2. IRINOTECAN HYDROCHLORIDE [Suspect]
     Indication: NON-SMALL CELL LUNG CANCER
     Dates: start: 20071010, end: 20071017
  3. TRAZODONE HYDROCHLORIDE [Suspect]
     Indication: ANTIDEPRESSANT THERAPY
     Route: 048
  4. TRAVELMIN (DIPHENHYDRAMINE SALICYLATE, DIPROPHYLLINE) [Suspect]
     Indication: DIZZINESS
     Route: 048
  5. DIFENIDOL HYDROCHLORIDE [Suspect]
     Indication: DIZZINESS
     Route: 048
  6. OXYCODONE HYDROCHLORIDE [Concomitant]
     Indication: PAIN
     Route: 048
     Dates: start: 20071005, end: 20071108
  7. MAGNESIUM OXIDE [Concomitant]
     Indication: LAXATIVE SUPPORTIVE CARE
     Route: 048
     Dates: start: 20071005
  8. AMLODIPINE [Concomitant]
     Indication: HYPERTENSION
     Route: 048
  9. CANDESARTAN CILEXETIL [Concomitant]
     Indication: HYPERTENSION
     Route: 048
  10. ATORVASTATIN [Concomitant]
     Indication: HYPERLIPIDAEMIA
     Route: 048
  11. MECOBALAMIN [Concomitant]
     Indication: NEUROPATHY PERIPHERAL
     Route: 048
  12. WARFARIN SODIUM [Concomitant]
     Indication: ANTICOAGULANT THERAPY
     Route: 048

REACTIONS (3)
  - LEUKOPENIA [None]
  - NEUTROPENIA [None]
  - URINARY RETENTION [None]
